FAERS Safety Report 5176655-3 (Version None)
Quarter: 2006Q4

REPORT INFORMATION
  Report Type: 
  Country: None (occurrence: None)
  Receive Date: 20061215
  Receipt Date: 20061030
  Transmission Date: 20070319
  Serious: Yes (Hospitalization, Other)
  Sender: FDA-Public Use
  Company Number: US-MERCK-0610USA15491

PATIENT
  Age: 58 Year
  Sex: Female

DRUGS (7)
  1. CRIXIVAN [Suspect]
     Indication: HIV INFECTION
     Route: 048
  2. PROCRIT [Suspect]
     Indication: HAEMOLYTIC ANAEMIA
     Route: 058
     Dates: start: 20010101
  3. PROCRIT [Suspect]
     Route: 058
     Dates: start: 20050412, end: 20060920
  4. AMITRIPTYLINE HYDROCHLORIDE [Concomitant]
     Route: 065
  5. COMBIVIR [Suspect]
     Indication: HIV INFECTION
     Route: 065
     Dates: start: 19980101
  6. ADVAIR DISKUS 100/50 [Concomitant]
     Route: 065
  7. SPIRIVA [Concomitant]
     Route: 065

REACTIONS (3)
  - DRUG INEFFECTIVE [None]
  - DRUG SPECIFIC ANTIBODY ABSENT [None]
  - HAEMOLYSIS [None]
